FAERS Safety Report 4311627-X (Version None)
Quarter: 2004Q1

REPORT INFORMATION
  Report Type: 
  Country: None (occurrence: None)
  Receive Date: 20040303
  Receipt Date: 20040303
  Transmission Date: 20041129
  Serious: Yes (Congenital Anomaly)
  Sender: FDA-Public Use
  Company Number: None

PATIENT
  Sex: Male

DRUGS (2)
  1. PANTOPRAZOLE [Suspect]
     Indication: PROPHYLAXIS
     Dosage: 40 MG IV QD
     Route: 042
     Dates: start: 20040301
  2. PANTOPRAZOLE [Suspect]
     Indication: STRESS ULCER
     Dosage: 40 MG IV QD
     Route: 042
     Dates: start: 20040301

REACTIONS (4)
  - ERYTHEMA [None]
  - FLUSHING [None]
  - HALLUCINATION [None]
  - HYPERHIDROSIS [None]
